FAERS Safety Report 9610375 (Version 2)
Quarter: 2013Q4

REPORT INFORMATION
  Report Type: Spontaneous
  Country: US (occurrence: US)
  Receive Date: 20131009
  Receipt Date: 20131009
  Transmission Date: 20140711
  Serious: Yes (Hospitalization, Other)
  Sender: FDA-Public Use
  Company Number: US-NAPPMUNDI-USA-2012-0096429

PATIENT
  Age: 92 Year
  Sex: Female

DRUGS (1)
  1. BUTRANS [Suspect]
     Indication: NEUROPATHY PERIPHERAL
     Dosage: UNK
     Route: 062
     Dates: start: 201208, end: 201212

REACTIONS (7)
  - Urinary tract infection [Unknown]
  - Hallucination [Recovering/Resolving]
  - Fall [Not Recovered/Not Resolved]
  - Unresponsive to stimuli [Unknown]
  - Personality change [Unknown]
  - Herpes zoster [Unknown]
  - Incoherent [Unknown]
